FAERS Safety Report 7041529-X (Version None)
Quarter: 2010Q4

REPORT INFORMATION
  Report Type: 
  Country: None (occurrence: None)
  Receive Date: 20101013
  Receipt Date: 20100601
  Transmission Date: 20110411
  Serious: No
  Sender: FDA-Public Use
  Company Number: US-ASTRAZENECA-2010SE25238

PATIENT
  Age: 49 Year
  Sex: Female

DRUGS (5)
  1. SYMBICORT [Suspect]
     Dosage: 160 MCGS
     Route: 055
     Dates: start: 20100301, end: 20100401
  2. SYMBICORT [Suspect]
     Dosage: 320 MCGS
     Route: 055
     Dates: start: 20100401
  3. HYDROCHLOROTHIAZIDE [Concomitant]
  4. MUCINEX [Concomitant]
  5. ALBUTEROL [Concomitant]

REACTIONS (3)
  - COUGH [None]
  - PNEUMONIA [None]
  - PYREXIA [None]
